FAERS Safety Report 25447693 (Version 1)
Quarter: 2025Q2

REPORT INFORMATION
  Report Type: Spontaneous
  Country: US (occurrence: US)
  Receive Date: 20250617
  Receipt Date: 20250617
  Transmission Date: 20250717
  Serious: No
  Sender: MYLAN
  Company Number: US-MYLANLABS-2025M1048072

PATIENT
  Age: 80 Year
  Sex: Male

DRUGS (1)
  1. BREYNA [Suspect]
     Active Substance: BUDESONIDE\FORMOTEROL FUMARATE
     Indication: Hypersensitivity pneumonitis
     Dosage: 80 PER 4.5 MICROGRAM, BID (2 PUFFS PER DAY, 1 IN THE MORNING AND 1 AT NIGHT)

REACTIONS (3)
  - Off label use [Unknown]
  - Device issue [Unknown]
  - Device malfunction [Unknown]

NARRATIVE: CASE EVENT DATE: 20250604
